FAERS Safety Report 9541529 (Version 1)
Quarter: 2013Q3

REPORT INFORMATION
  Report Type: Report from Study
  Country: GB (occurrence: AU)
  Receive Date: 20130923
  Receipt Date: 20130923
  Transmission Date: 20140515
  Serious: Yes (Hospitalization)
  Sender: FDA-Public Use
  Company Number: GB-JNJFOC-20130908540

PATIENT
  Age: 59 Year
  Sex: Male
  Weight: 105 kg

DRUGS (4)
  1. ABIRATERONE ACETATE [Suspect]
     Indication: PROSTATE CANCER METASTATIC
     Route: 048
     Dates: start: 20120824
  2. ZOLADEX [Concomitant]
     Indication: PROSTATE CANCER METASTATIC
     Route: 058
     Dates: start: 20120718
  3. TAMSULOSIN [Concomitant]
     Route: 048
  4. TOLTERODINE [Concomitant]
     Route: 048

REACTIONS (1)
  - Suprapubic pain [Recovered/Resolved with Sequelae]
